FAERS Safety Report 16948053 (Version 2)
Quarter: 2022Q2

REPORT INFORMATION
  Report Type: Spontaneous
  Country: US (occurrence: None)
  Receive Date: 20191022
  Receipt Date: 20220426
  Transmission Date: 20220721
  Serious: No
  Sender: FDA-Public Use
  Company Number: US-ROCHE-2350004

PATIENT
  Sex: Male

DRUGS (5)
  1. ESBRIET [Suspect]
     Active Substance: PIRFENIDONE
     Indication: Idiopathic pulmonary fibrosis
     Dosage: 3 TABLETS BY MOUTH THRICE A DAY WITH MEALS
     Route: 048
     Dates: start: 20190319
  2. ESBRIET [Suspect]
     Active Substance: PIRFENIDONE
     Route: 048
  3. XARELTO [Concomitant]
     Active Substance: RIVAROXABAN
  4. MELOXICAM [Concomitant]
     Active Substance: MELOXICAM
  5. ALKA-SELTZER [Concomitant]
     Active Substance: ANHYDROUS CITRIC ACID\ASPIRIN\SODIUM BICARBONATE
     Dosage: 325-1000

REACTIONS (7)
  - Blister [Not Recovered/Not Resolved]
  - Burning sensation [Unknown]
  - Pruritus [Unknown]
  - Sunburn [Not Recovered/Not Resolved]
  - Pruritus [Not Recovered/Not Resolved]
  - Cough [Not Recovered/Not Resolved]
  - Arthralgia [Not Recovered/Not Resolved]
